FAERS Safety Report 5806226-4 (Version None)
Quarter: 2008Q3

REPORT INFORMATION
  Report Type: 
  Country: None (occurrence: None)
  Receive Date: 20080709
  Receipt Date: 20080709
  Transmission Date: 20090109
  Serious: Yes (Disabling)
  Sender: FDA-Public Use
  Company Number: None

PATIENT
  Sex: Male

DRUGS (3)
  1. SENSORCAINE [Suspect]
     Indication: JOINT INJURY
     Dosage: 500 CC 014
     Dates: start: 20020221, end: 20020222
  2. BUPIVACAINE HYDROCHLORIDE AND EPINEPHRINE [Suspect]
     Indication: ROTATOR CUFF SYNDROME
     Dosage: 330 CC 014
     Dates: start: 20021205
  3. STRYKER PAIN PUMP [Concomitant]

REACTIONS (3)
  - DEVICE FAILURE [None]
  - OSTEOARTHRITIS [None]
  - TENODESIS [None]
